FAERS Safety Report 7640815-X (Version None)
Quarter: 2011Q3

REPORT INFORMATION
  Report Type: 
  Country: None (occurrence: None)
  Receive Date: 20110728
  Receipt Date: 20110516
  Transmission Date: 20111222
  Serious: No
  Sender: FDA-Public Use
  Company Number: US-MUTUAL PHARMACEUTICAL COMPANY, INC.-CLCY20110061

PATIENT
  Sex: Male
  Weight: 118.04 kg

DRUGS (3)
  1. LORATADINE OTC [Concomitant]
     Indication: HYPERSENSITIVITY
     Route: 048
  2. DIOVAN HCT 160/20 MG [Concomitant]
     Indication: HYPERTENSION
     Route: 048
  3. COLCRYS [Suspect]
     Indication: GOUT
     Route: 048
     Dates: start: 20110513

REACTIONS (2)
  - INITIAL INSOMNIA [None]
  - DIARRHOEA [None]
